FAERS Safety Report 21269963 (Version 1)
Quarter: 2022Q3

REPORT INFORMATION
  Report Type: Spontaneous
  Country: US (occurrence: US)
  Receive Date: 20220830
  Receipt Date: 20220830
  Transmission Date: 20221027
  Serious: Yes (Life-Threatening, Hospitalization)
  Sender: FDA-Public Use
  Company Number: US-MYLANLABS-2022M1089580

PATIENT
  Age: 39 Year
  Sex: Female

DRUGS (13)
  1. NOREPINEPHRINE [Suspect]
     Active Substance: NOREPINEPHRINE
     Indication: Haemodynamic instability
     Dosage: 22 MICROGRAM, QMINUTE
     Route: 065
  2. EPINEPHRINE [Suspect]
     Active Substance: EPINEPHRINE
     Indication: Haemodynamic instability
     Dosage: 5 MICROGRAM, QMINUTE
     Route: 065
  3. EPINEPHRINE [Suspect]
     Active Substance: EPINEPHRINE
     Dosage: 2 MICROGRAM, QMINUTE
     Route: 065
  4. HEPARIN [Suspect]
     Active Substance: HEPARIN SODIUM
     Indication: Pulmonary embolism
     Dosage: UNK (INFUSION)
     Route: 065
  5. VANCOMYCIN [Suspect]
     Active Substance: VANCOMYCIN
     Indication: Evidence based treatment
     Dosage: UNK
     Route: 065
  6. VASOPRESSIN [Suspect]
     Active Substance: VASOPRESSIN
     Indication: Haemodynamic instability
     Dosage: UNK (0.04 U/MIN)
     Route: 065
  7. EPOPROSTENOL [Suspect]
     Active Substance: EPOPROSTENOL
     Indication: Acute respiratory distress syndrome
     Dosage: UNK
     Route: 045
  8. INSULIN NOS [Concomitant]
     Active Substance: INSULIN NOS
     Indication: Hypertriglyceridaemia
     Dosage: UNK (INFUSION)
     Route: 065
  9. DEXTROSE\SODIUM CHLORIDE [Concomitant]
     Active Substance: DEXTROSE\SODIUM CHLORIDE
     Indication: Hypertriglyceridaemia
     Dosage: UNK
     Route: 065
  10. CISATRACURIUM [Concomitant]
     Active Substance: CISATRACURIUM
     Indication: Sedation
     Dosage: UNK
     Route: 065
  11. ALTEPLASE [Concomitant]
     Active Substance: ALTEPLASE
     Indication: Pulmonary embolism
     Dosage: 50 MILLIGRAM (10 MG BOLUS, 40 MG INFUSION GIVEN OVER 2 HOURS)
     Route: 065
  12. GEMFIBROZIL [Concomitant]
     Active Substance: GEMFIBROZIL
     Indication: Hypertriglyceridaemia
     Dosage: UNK
     Route: 065
  13. ARGATROBAN [Concomitant]
     Active Substance: ARGATROBAN
     Indication: Anticoagulant therapy
     Dosage: UNK
     Route: 065

REACTIONS (5)
  - Drug ineffective [Unknown]
  - Thrombocytopenia [Recovering/Resolving]
  - Peripheral ischaemia [Recovering/Resolving]
  - Dry gangrene [Recovering/Resolving]
  - Heparin-induced thrombocytopenia [Recovered/Resolved]
